FAERS Safety Report 8187961-2 (Version None)
Quarter: 2012Q1

REPORT INFORMATION
  Report Type: 
  Country: None (occurrence: None)
  Receive Date: 20120306
  Receipt Date: 20120228
  Transmission Date: 20120608
  Serious: Yes (Other)
  Sender: FDA-Public Use
  Company Number: US-GLAXOSMITHKLINE-B0785865A

PATIENT
  Age: 50 Year
  Sex: Male

DRUGS (1)
  1. ACITRETIN [Suspect]
     Indication: PSORIASIS
     Dosage: 50MG PER DAY
     Route: 065

REACTIONS (6)
  - ACHROMOTRICHIA ACQUIRED [None]
  - ALOPECIA [None]
  - PRURITUS [None]
  - HAIR COLOUR CHANGES [None]
  - SKIN ATROPHY [None]
  - SKIN EXFOLIATION [None]
